FAERS Safety Report 16488157 (Version 2)
Quarter: 2019Q3

REPORT INFORMATION
  Report Type: Spontaneous
  Country: JP (occurrence: JP)
  Receive Date: 20190627
  Receipt Date: 20190726
  Transmission Date: 20191004
  Serious: Yes (Hospitalization, Other)
  Sender: FDA-Public Use
  Company Number: PHJP2019JP005753

PATIENT
  Age: 21 Year
  Sex: Male
  Weight: 52 kg

DRUGS (2)
  1. GILENYA [Suspect]
     Active Substance: FINGOLIMOD HYDROCHLORIDE
     Indication: RELAPSING-REMITTING MULTIPLE SCLEROSIS
     Dosage: 0.5 MG, QD
     Route: 048
     Dates: start: 20130305, end: 20180122
  2. URITOS [Concomitant]
     Active Substance: IMIDAFENACIN
     Indication: DYSURIA
     Dosage: 0.1 MG, BID
     Route: 048
     Dates: start: 20160623

REACTIONS (15)
  - Balance disorder [Unknown]
  - Irritable bowel syndrome [Recovering/Resolving]
  - Gait disturbance [Unknown]
  - Ataxia [Unknown]
  - Hepatic function abnormal [Recovered/Resolved]
  - Rebound effect [Unknown]
  - Muscular weakness [Unknown]
  - Pneumonia aspiration [Unknown]
  - Central nervous system lesion [Unknown]
  - White matter lesion [Unknown]
  - Dysarthria [Unknown]
  - Relapsing-remitting multiple sclerosis [Recovered/Resolved with Sequelae]
  - Dyslalia [Unknown]
  - Lymphocyte count decreased [Recovered/Resolved]
  - Dysphagia [Unknown]

NARRATIVE: CASE EVENT DATE: 201303
